FAERS Safety Report 5054482-5 (Version None)
Quarter: 2006Q3

REPORT INFORMATION
  Report Type: 
  Country: None (occurrence: None)
  Receive Date: 20060713
  Receipt Date: 20060630
  Transmission Date: 20061208
  Serious: Yes (Hospitalization)
  Sender: FDA-Public Use
  Company Number: 163-21880-06050492

PATIENT
  Age: 69 Year
  Sex: Male
  Weight: 101.6057 kg

DRUGS (5)
  1. REVLIMID [Suspect]
     Indication: MYELODYSPLASTIC SYNDROME
     Dosage: 5 MG, 1 IN 1 D, ORAL
     Route: 048
     Dates: start: 20060501, end: 20060512
  2. PROSCAR [Concomitant]
  3. FLOMAX [Concomitant]
  4. ZESTRIL [Concomitant]
  5. IBUPROFEN [Concomitant]

REACTIONS (6)
  - ASTHENIA [None]
  - HEADACHE [None]
  - MYALGIA [None]
  - PAIN [None]
  - PANCREATITIS ACUTE [None]
  - STOMACH DISCOMFORT [None]
